FAERS Safety Report 23531368 (Version 2)
Quarter: 2025Q1

REPORT INFORMATION
  Report Type: Spontaneous
  Country: US (occurrence: US)
  Receive Date: 20240216
  Receipt Date: 20250205
  Transmission Date: 20250408
  Serious: Yes (Death)
  Sender: pharmaAND
  Company Number: US-Pharmaand-2023001328

PATIENT
  Sex: Male

DRUGS (1)
  1. RUBRACA [Suspect]
     Active Substance: RUCAPARIB CAMSYLATE
     Indication: Prostate cancer
     Dosage: 600 MG BID
     Route: 048
     Dates: start: 20230511, end: 20231109

REACTIONS (1)
  - Malignant neoplasm progression [Fatal]
